FAERS Safety Report 9792966 (Version 7)
Quarter: 2014Q4

REPORT INFORMATION
  Report Type: Spontaneous
  Country: US (occurrence: US)
  Receive Date: 20140102
  Receipt Date: 20141212
  Transmission Date: 20150529
  Serious: Yes (Hospitalization, Other)
  Sender: FDA-Public Use
  Company Number: US-009507513-1312USA011702

PATIENT
  Sex: Female
  Weight: 88.89 kg

DRUGS (4)
  1. FOSAMAX [Suspect]
     Active Substance: ALENDRONATE SODIUM
     Indication: OSTEOPOROSIS
     Dosage: 70 MG, QW
     Route: 048
     Dates: start: 20020109
  2. FOSAMAX [Suspect]
     Active Substance: ALENDRONATE SODIUM
     Indication: OSTEOPENIA
  3. ALENDRONATE SODIUM. [Suspect]
     Active Substance: ALENDRONATE SODIUM
     Indication: OSTEOPENIA
  4. ALENDRONATE SODIUM. [Suspect]
     Active Substance: ALENDRONATE SODIUM
     Indication: OSTEOPOROSIS
     Dosage: UNK
     Dates: start: 2002, end: 2013

REACTIONS (18)
  - Intramedullary rod insertion [Unknown]
  - Post procedural complication [Unknown]
  - Haemorrhagic anaemia [Unknown]
  - Femur fracture [Recovering/Resolving]
  - Gait disturbance [Unknown]
  - Arthritis [Unknown]
  - Adverse event [Unknown]
  - Arthralgia [Unknown]
  - Bursitis [Unknown]
  - Femur fracture [Recovering/Resolving]
  - Hypoxia [Unknown]
  - Low turnover osteopathy [Unknown]
  - Dyslipidaemia [Unknown]
  - Intramedullary rod insertion [Unknown]
  - Fall [Unknown]
  - Anaemia postoperative [Unknown]
  - Glomerulosclerosis [Unknown]
  - Treatment failure [Unknown]

NARRATIVE: CASE EVENT DATE: 20020220
